FAERS Safety Report 5808900-2 (Version None)
Quarter: 2008Q3

REPORT INFORMATION
  Report Type: 
  Country: None (occurrence: None)
  Receive Date: 20080714
  Receipt Date: 20080707
  Transmission Date: 20090109
  Serious: Yes (Disabling)
  Sender: FDA-Public Use
  Company Number: US-MERCK-0804USA01453

PATIENT
  Age: 42 Year
  Sex: Male
  Weight: 114 kg

DRUGS (3)
  1. VYTORIN [Suspect]
     Indication: BLOOD CHOLESTEROL
     Route: 048
     Dates: start: 20050101, end: 20060801
  2. ASPIRIN [Concomitant]
     Route: 065
  3. ZESTRIL [Concomitant]
     Route: 065

REACTIONS (2)
  - MYALGIA [None]
  - TENDON INJURY [None]
